FAERS Safety Report 7085308-6 (Version None)
Quarter: 2010Q4

REPORT INFORMATION
  Report Type: 
  Country: None (occurrence: None)
  Receive Date: 20101105
  Receipt Date: 20101022
  Transmission Date: 20110411
  Serious: Yes (Other)
  Sender: FDA-Public Use
  Company Number: CL-PFIZER INC-2010140765

PATIENT
  Sex: Male

DRUGS (1)
  1. CELEBRA [Suspect]
     Dosage: 1X/DAY

REACTIONS (1)
  - CARDIAC FLUTTER [None]
